FAERS Safety Report 7658638 (Version 19)
Quarter: 2014Q2

REPORT INFORMATION
  Report Type: Spontaneous
  Country: CA (occurrence: CA)
  Receive Date: 20101105
  Receipt Date: 20140613
  Transmission Date: 20141212
  Serious: Yes (Hospitalization, Other)
  Sender: FDA-Public Use
  Company Number: CA-ROCHE-GNE308939

PATIENT
  Age: 62 Year
  Sex: Male

DRUGS (10)
  1. XOLAIR [Suspect]
     Indication: ASTHMA
     Route: 058
     Dates: start: 20091106
  2. XOLAIR [Suspect]
     Route: 058
     Dates: start: 20100415
  3. XOLAIR [Suspect]
     Route: 058
     Dates: start: 20101208
  4. XOLAIR [Suspect]
     Route: 058
     Dates: start: 20120614, end: 20120614
  5. SEEBRI [Suspect]
     Indication: PRODUCT USED FOR UNKNOWN INDICATION
     Route: 055
  6. PREDNISONE [Concomitant]
     Indication: PRODUCT USED FOR UNKNOWN INDICATION
  7. SYMBICORT [Concomitant]
     Indication: PRODUCT USED FOR UNKNOWN INDICATION
     Dosage: 4 PUFFS A DAY
     Route: 065
  8. SINGULAIR [Concomitant]
     Indication: PRODUCT USED FOR UNKNOWN INDICATION
  9. ALVESCO [Concomitant]
     Indication: PRODUCT USED FOR UNKNOWN INDICATION
  10. ATROVENT [Concomitant]

REACTIONS (23)
  - Renal failure [Unknown]
  - Pneumonia viral [Unknown]
  - Malaise [Unknown]
  - Atrial fibrillation [Not Recovered/Not Resolved]
  - Blood pressure increased [Unknown]
  - Lower respiratory tract infection [Recovering/Resolving]
  - Breath sounds abnormal [Unknown]
  - Wheezing [Unknown]
  - Asthenia [Unknown]
  - Fatigue [Unknown]
  - Heart rate irregular [Unknown]
  - Heart rate increased [Unknown]
  - Heart rate decreased [Unknown]
  - Nasopharyngitis [Unknown]
  - Cough [Unknown]
  - Cardiac disorder [Unknown]
  - Asthma [Unknown]
  - Peripheral swelling [Unknown]
  - Muscle spasms [Unknown]
  - Pain [Unknown]
  - Fluid retention [Unknown]
  - Movement disorder [Unknown]
  - Fatigue [Unknown]
